FAERS Safety Report 8011818-0 (Version None)
Quarter: 2011Q4

REPORT INFORMATION
  Report Type: 
  Country: None (occurrence: None)
  Receive Date: 20111228
  Receipt Date: 20111227
  Transmission Date: 20120403
  Serious: Yes (Other)
  Sender: FDA-Public Use
  Company Number: JP-PFIZER INC-2011310862

PATIENT
  Age: 76 Year
  Sex: Male

DRUGS (7)
  1. CARVEDILOL [Concomitant]
     Dosage: UNK
     Route: 048
  2. WARFARIN [Concomitant]
     Dosage: UNK
     Route: 048
  3. DIGOXIN [Concomitant]
     Dosage: UNK
     Route: 048
  4. MUCOSTA [Concomitant]
     Dosage: UNK
     Route: 048
  5. LIPITOR [Suspect]
     Indication: HYPERLIPIDAEMIA
     Dosage: 10MG/DAY
     Route: 048
     Dates: start: 20071212, end: 20110622
  6. VALSARTAN [Concomitant]
     Dosage: UNK
     Route: 048
  7. NORVASC [Concomitant]
     Dosage: UNK
     Route: 048

REACTIONS (1)
  - INTERSTITIAL LUNG DISEASE [None]
